FAERS Safety Report 5636548-1 (Version None)
Quarter: 2008Q1

REPORT INFORMATION
  Report Type: 
  Country: None (occurrence: None)
  Receive Date: 20080225
  Receipt Date: 20080125
  Transmission Date: 20080703
  Serious: No
  Sender: FDA-Public Use
  Company Number: US-BAYER-200812338NA

PATIENT
  Sex: Female

DRUGS (1)
  1. AVELOX [Suspect]
     Indication: SINUSITIS
     Route: 048

REACTIONS (3)
  - CONFUSIONAL STATE [None]
  - DIZZINESS [None]
  - MEMORY IMPAIRMENT [None]
